FAERS Safety Report 11318524 (Version 1)
Quarter: 2015Q3

REPORT INFORMATION
  Report Type: Spontaneous
  Country: US (occurrence: US)
  Receive Date: 20150729
  Receipt Date: 20150729
  Transmission Date: 20151125
  Serious: No
  Sender: FDA-Public Use
  Company Number: US-ASTRAZENECA-2015SE70618

PATIENT
  Sex: Female

DRUGS (1)
  1. ANASTRAZOLE [Suspect]
     Active Substance: ANASTROZOLE
     Route: 048
     Dates: start: 20150417

REACTIONS (4)
  - Fatigue [Unknown]
  - Arthritis [Unknown]
  - Amnesia [Unknown]
  - Cognitive disorder [Unknown]
